FAERS Safety Report 26101390 (Version 1)
Quarter: 2025Q4

REPORT INFORMATION
  Report Type: Report from Study
  Country: GB (occurrence: GB)
  Receive Date: 20251128
  Receipt Date: 20251128
  Transmission Date: 20260117
  Serious: Yes (Hospitalization)
  Sender: SAMSUNG BIOEPIS
  Company Number: GB-SAMSUNG BIOEPIS-SB-2025-39042

PATIENT
  Age: 7 Year
  Sex: Male

DRUGS (3)
  1. EPYSQLI [Suspect]
     Active Substance: ECULIZUMAB-AAGH
     Indication: Atypical haemolytic uraemic syndrome
     Dosage: VIAL;
     Dates: start: 202510
  2. EPYSQLI [Suspect]
     Active Substance: ECULIZUMAB-AAGH
     Indication: Product used for unknown indication
     Dosage: RESTARTED;
  3. SODIUM CHLORIDE [Concomitant]
     Active Substance: SODIUM CHLORIDE
     Indication: Product used for unknown indication

REACTIONS (5)
  - Infection [Not Recovered/Not Resolved]
  - Back pain [Recovered/Resolved]
  - Discomfort [Recovered/Resolved]
  - Crying [Recovered/Resolved]
  - Off label use [Unknown]
